FAERS Safety Report 24013757 (Version 1)
Quarter: 2024Q2

REPORT INFORMATION
  Report Type: Spontaneous
  Country: US (occurrence: US)
  Receive Date: 20240626
  Receipt Date: 20240626
  Transmission Date: 20240715
  Serious: No
  Sender: FDA-Public Use
  Company Number: US-ALCON LABORATORIES-ALC2023US002475

PATIENT
  Sex: Female

DRUGS (2)
  1. PATADAY TWICE A DAY RELIEF [Suspect]
     Active Substance: OLOPATADINE HYDROCHLORIDE
     Indication: Hypersensitivity
     Dosage: UNK
     Route: 047
  2. PATADAY TWICE A DAY RELIEF [Suspect]
     Active Substance: OLOPATADINE HYDROCHLORIDE
     Indication: Eye pruritus

REACTIONS (1)
  - Eye pain [Recovered/Resolved]
